FAERS Safety Report 18841655 (Version 1)
Quarter: 2021Q1

REPORT INFORMATION
  Report Type: Spontaneous
  Country: US (occurrence: US)
  Receive Date: 20210203
  Receipt Date: 20210203
  Transmission Date: 20210419
  Serious: No
  Sender: FDA-Public Use
  Company Number: US-PFIZER INC-2021064379

PATIENT
  Age: 50 Year
  Sex: Female
  Weight: 90.72 kg

DRUGS (3)
  1. EXEMESTANE. [Concomitant]
     Active Substance: EXEMESTANE
     Indication: HORMONE THERAPY
     Dosage: 25 MG, DAILY
     Route: 048
     Dates: start: 202002
  2. IBRANCE [Suspect]
     Active Substance: PALBOCICLIB
     Indication: BREAST CANCER METASTATIC
     Dosage: 125 MG, CYCLIC (ONCE A DAY FOR 21 DAYS AND ONE WEEK OFF)
     Route: 048
     Dates: start: 20200811
  3. IBRANCE [Suspect]
     Active Substance: PALBOCICLIB
     Dosage: 100 MG, CYCLIC (ONCE DAILY FOR 21 DAYS THEN 7 DAYS OFF)

REACTIONS (2)
  - Anxiety [Unknown]
  - Hormone level abnormal [Unknown]
